FAERS Safety Report 16124422 (Version 1)
Quarter: 2019Q1

REPORT INFORMATION
  Report Type: Spontaneous
  Country: US (occurrence: US)
  Receive Date: 20190327
  Receipt Date: 20190327
  Transmission Date: 20190418
  Serious: No
  Sender: FDA-Public Use
  Company Number: US-SA-2019SA080586

PATIENT
  Sex: Male
  Weight: 97.5 kg

DRUGS (5)
  1. DUPIXENT [Suspect]
     Active Substance: DUPILUMAB
     Dosage: 300 MG, QOW
     Route: 058
     Dates: start: 20190118
  2. MOMETASONE FUROATE. [Concomitant]
     Active Substance: MOMETASONE FUROATE
  3. GENTAMYCIN SULFATE [Concomitant]
     Active Substance: GENTAMICIN SULFATE
  4. CLOBETASOL PROPIONATE. [Concomitant]
     Active Substance: CLOBETASOL PROPIONATE
  5. NEOMYCIN / POLY B / DEXAMETHASONE [Concomitant]
     Dosage: 0.1%

REACTIONS (1)
  - Eye pruritus [Unknown]
